FAERS Safety Report 5888719-7 (Version None)
Quarter: 2008Q3

REPORT INFORMATION
  Report Type: 
  Country: None (occurrence: None)
  Receive Date: 20080917
  Receipt Date: 20080902
  Transmission Date: 20090109
  Serious: Yes (Other)
  Sender: FDA-Public Use
  Company Number: RENA-1000178

PATIENT
  Age: 71 Year
  Sex: Female

DRUGS (9)
  1. RENAGEL [Suspect]
     Indication: HYPERPHOSPHATAEMIA
     Dosage: UNK MD QD ORAL
     Route: 048
     Dates: end: 20080210
  2. RENAGEL [Suspect]
     Indication: HYPERPHOSPHATAEMIA
     Dosage: UNK MD QD ORAL
     Route: 048
     Dates: start: 20080821
  3. FOSRENOL [Suspect]
     Dates: start: 20080210, end: 20080321
  4. FOSRENOL [Suspect]
     Dates: start: 20080101
  5. ACETAMINOPHEN [Suspect]
     Indication: ARTHRALGIA
     Dosage: 1 G TID VAGINAL
     Route: 067
     Dates: start: 20070504
  6. DURAGESIC-100 [Suspect]
     Indication: PAIN
     Dosage: 25 MCG
     Dates: start: 20061220
  7. CLONAZEPAM [Suspect]
     Indication: NEUROPATHY PERIPHERAL
     Dosage: 1 MG QD UNKNOWN
     Dates: start: 20070514
  8. HEXAQUINE (MELALEUCA VIRIDIFLORA OIL, QUININE BENZOATE, THIAMINE HYDRO [Suspect]
     Indication: MUSCLE SPASMS
     Dosage: 1 UNK QD UNKNOWN
     Dates: start: 20041119
  9. KAYEXALATE [Concomitant]
     Indication: HYPERKALAEMIA
     Dosage: 2 UNK UNK UNKNOWN
     Dates: start: 20041117

REACTIONS (11)
  - ABDOMINAL PAIN [None]
  - DIVERTICULUM [None]
  - DRUG INTOLERANCE [None]
  - DYSPEPSIA [None]
  - HEPATIC CYST [None]
  - LIPASE INCREASED [None]
  - NEPHROLITHIASIS [None]
  - OVARIAN CYST [None]
  - PANCREATITIS [None]
  - RENAL CYST [None]
  - RENAL DISORDER [None]
